FAERS Safety Report 5757170-2 (Version None)
Quarter: 2008Q2

REPORT INFORMATION
  Report Type: 
  Country: None (occurrence: None)
  Receive Date: 20080603
  Receipt Date: 20080527
  Transmission Date: 20081010
  Serious: Yes (Other)
  Sender: FDA-Public Use
  Company Number: GB-JNJFOC-20080506078

PATIENT
  Age: 44 Year
  Sex: Female

DRUGS (2)
  1. HALOPERIDOL [Suspect]
     Indication: BIPOLAR DISORDER
     Route: 065
  2. OLANZAPINE [Suspect]
     Indication: BIPOLAR DISORDER
     Route: 065

REACTIONS (3)
  - DELUSION [None]
  - HYPERPROLACTINAEMIA [None]
  - SOMATOFORM DISORDER PREGNANCY [None]
